FAERS Safety Report 10714150 (Version 2)
Quarter: 2015Q1

REPORT INFORMATION
  Report Type: Spontaneous
  Country: US (occurrence: US)
  Receive Date: 20150115
  Receipt Date: 20150123
  Transmission Date: 20150721
  Serious: No
  Sender: FDA-Public Use
  Company Number: US-TEVA-534490USA

PATIENT
  Sex: Female
  Weight: 80.81 kg

DRUGS (3)
  1. DEPAKOTE [Concomitant]
     Active Substance: DIVALPROEX SODIUM
     Indication: NERVOUS SYSTEM DISORDER
  2. AVONEX [Concomitant]
     Active Substance: INTERFERON BETA-1A
     Indication: MULTIPLE SCLEROSIS
  3. NUVIGIL [Suspect]
     Active Substance: ARMODAFINIL
     Indication: MULTIPLE SCLEROSIS
     Dosage: 50 MG IN T AM AND AT LUNCH
     Route: 048
     Dates: start: 20150106

REACTIONS (5)
  - Product use issue [Unknown]
  - Fatigue [Unknown]
  - Drug effect decreased [Unknown]
  - Somnolence [Unknown]
  - Irritability [Unknown]
